FAERS Safety Report 25839326 (Version 3)
Quarter: 2025Q4

REPORT INFORMATION
  Report Type: Report from Study
  Country: US (occurrence: US)
  Receive Date: 20250924
  Receipt Date: 20251003
  Transmission Date: 20260118
  Serious: Yes (Hospitalization)
  Sender: ABBVIE
  Company Number: US-ABBVIE-6471091

PATIENT
  Age: 63 Year
  Sex: Male

DRUGS (1)
  1. VYALEV [Suspect]
     Active Substance: FOSCARBIDOPA\FOSLEVODOPA
     Indication: Parkinson^s disease
     Dosage: CONTINUOUS 24 HOUR INFUSION
     Route: 058
     Dates: start: 20250911

REACTIONS (5)
  - Catheter site cellulitis [Recovering/Resolving]
  - Infusion site irritation [Unknown]
  - Catheter site inflammation [Unknown]
  - Blood glucose increased [Unknown]
  - Infusion site infection [Recovering/Resolving]

NARRATIVE: CASE EVENT DATE: 20250901
